FAERS Safety Report 22650364 (Version 1)
Quarter: 2023Q2

REPORT INFORMATION
  Report Type: Spontaneous
  Country: US (occurrence: US)
  Receive Date: 20230628
  Receipt Date: 20230628
  Transmission Date: 20230722
  Serious: No
  Sender: FDA-Public Use
  Company Number: US-MAYNE PHARMA-2022TMD00836

PATIENT
  Age: 58 Year
  Sex: Female
  Weight: 63.492 kg

DRUGS (4)
  1. IMVEXXY [Suspect]
     Active Substance: ESTRADIOL
     Indication: Atrophic vulvovaginitis
     Dosage: 4 ?G, 2X/WEEK
     Route: 067
     Dates: start: 202110, end: 202207
  2. IMVEXXY [Suspect]
     Active Substance: ESTRADIOL
     Indication: Vulvovaginal dryness
     Dosage: 4 ?G, 1X/WEEK
     Route: 067
     Dates: start: 202207, end: 202208
  3. MULTIVITAMIN CENTRUM ONE A DAY [Concomitant]
     Dosage: 1 TABLET, 1X/DAY
     Route: 048
  4. VITAMIN D [Concomitant]
     Active Substance: VITAMIN D NOS
     Dosage: 5000 MG, 1X/DAY
     Route: 048
     Dates: start: 2007

REACTIONS (4)
  - Abdominal pain [Recovering/Resolving]
  - Urinary tract infection [Recovered/Resolved]
  - Intentional product misuse [Recovered/Resolved]
  - Contraindicated product administered [Recovered/Resolved]

NARRATIVE: CASE EVENT DATE: 20211001
